FAERS Safety Report 22187683 (Version 1)
Quarter: 2023Q2

REPORT INFORMATION
  Report Type: Spontaneous
  Country: DE (occurrence: DE)
  Receive Date: 20230408
  Receipt Date: 20230408
  Transmission Date: 20230721
  Serious: Yes (Other)
  Sender: FDA-Public Use
  Company Number: DE-BAYER-2021A254233

PATIENT
  Sex: Male

DRUGS (2)
  1. XARELTO [Suspect]
     Active Substance: RIVAROXABAN
     Indication: Product used for unknown indication
     Dosage: 2.5 MG, BID
     Route: 048
  2. ASPIRIN [Concomitant]
     Active Substance: ASPIRIN

REACTIONS (1)
  - Thrombosis [Unknown]
